FAERS Safety Report 7805568-0 (Version None)
Quarter: 2011Q4

REPORT INFORMATION
  Report Type: 
  Country: None (occurrence: None)
  Receive Date: 20111010
  Receipt Date: 20111007
  Transmission Date: 20120403
  Serious: Yes (Disabling)
  Sender: FDA-Public Use
  Company Number: DE-MERCK-1110DEU00017

PATIENT
  Age: 59 Year
  Sex: Female

DRUGS (1)
  1. ZOCOR [Suspect]
     Route: 048
     Dates: start: 20100301, end: 20110601

REACTIONS (1)
  - PAIN [None]
